FAERS Safety Report 9891915 (Version 1)
Quarter: 2014Q1

REPORT INFORMATION
  Report Type: Other
  Country: GB (occurrence: GB)
  Receive Date: 20140212
  Receipt Date: 20140212
  Transmission Date: 20141002
  Serious: Yes (Hospitalization)
  Sender: FDA-Public Use
  Company Number: GB-PERRIGO-14GB001414

PATIENT
  Age: 65 Year
  Sex: Female

DRUGS (1)
  1. NAPROXEN 250MG 16028/0144 [Suspect]
     Indication: PAIN
     Dosage: 500 MG, BID
     Route: 048
     Dates: start: 20140127, end: 20140130

REACTIONS (1)
  - Asthma [Recovering/Resolving]
